FAERS Safety Report 6016038-7 (Version None)
Quarter: 2008Q4

REPORT INFORMATION
  Report Type: 
  Country: None (occurrence: None)
  Receive Date: 20081222
  Receipt Date: 20081215
  Transmission Date: 20090506
  Serious: Yes (Death)
  Sender: FDA-Public Use
  Company Number: US-PFIZER INC-2008153761

PATIENT
  Age: 21 Year
  Sex: Female

DRUGS (5)
  1. PREGABALIN [Suspect]
  2. CLONAZEPAM [Suspect]
  3. ACETAMINOPHEN AND HYDROCODONE BITARTRATE [Suspect]
  4. ACETAMINOPHEN AND OXYCODONE HCL [Suspect]
  5. AMPHETAMINE SULFATE [Suspect]

REACTIONS (1)
  - INTENTIONAL DRUG MISUSE [None]
